FAERS Safety Report 7469417-5 (Version None)
Quarter: 2011Q2

REPORT INFORMATION
  Report Type: 
  Country: None (occurrence: None)
  Receive Date: 20110510
  Receipt Date: 20110504
  Transmission Date: 20111010
  Serious: Yes (Hospitalization)
  Sender: FDA-Public Use
  Company Number: US-MEDIMMUNE-MEDI-0013015

PATIENT
  Sex: Male

DRUGS (2)
  1. SYNAGIS [Suspect]
     Route: 030
     Dates: start: 20110301, end: 20110301
  2. SYNAGIS [Suspect]
     Route: 030
     Dates: start: 20101101, end: 20110101

REACTIONS (1)
  - PNEUMONIA RESPIRATORY SYNCYTIAL VIRAL [None]
